FAERS Safety Report 23960922 (Version 1)
Quarter: 2024Q2

REPORT INFORMATION
  Report Type: Spontaneous
  Country: US (occurrence: None)
  Receive Date: 20240609
  Receipt Date: 20240609
  Transmission Date: 20240716
  Serious: Yes (Other)
  Sender: FDA-Public Use
  Company Number: None

PATIENT
  Age: 6 Year
  Sex: Male

DRUGS (1)
  1. MONTELUKAST [Suspect]
     Active Substance: MONTELUKAST SODIUM
     Indication: Rhinitis allergic
     Dosage: FREQUENCY : DAILY;?
     Route: 048
     Dates: start: 20220302, end: 20240228

REACTIONS (7)
  - Behaviour disorder [None]
  - Aggression [None]
  - Irritability [None]
  - Nightmare [None]
  - Enuresis [None]
  - Anger [None]
  - Impulsive behaviour [None]

NARRATIVE: CASE EVENT DATE: 20240228
